FAERS Safety Report 14605538 (Version 2)
Quarter: 2018Q3

REPORT INFORMATION
  Report Type: Spontaneous
  Country: US (occurrence: US)
  Receive Date: 20180306
  Receipt Date: 20180713
  Transmission Date: 20181010
  Serious: No
  Sender: FDA-Public Use
  Company Number: US-INTERCEPT-PMOCA2018000012

PATIENT

DRUGS (2)
  1. TIROSINT [Concomitant]
     Active Substance: LEVOTHYROXINE SODIUM
  2. OCALIVA [Suspect]
     Active Substance: OBETICHOLIC ACID
     Indication: PRIMARY BILIARY CHOLANGITIS
     Dosage: 5 MG, QD
     Route: 048
     Dates: start: 20171005

REACTIONS (4)
  - Joint swelling [Unknown]
  - Fatigue [Unknown]
  - Peripheral swelling [Unknown]
  - Pruritus [Unknown]
